FAERS Safety Report 5718209-3 (Version None)
Quarter: 2008Q2

REPORT INFORMATION
  Report Type: 
  Country: None (occurrence: None)
  Receive Date: 20080425
  Receipt Date: 20080415
  Transmission Date: 20081010
  Serious: Yes (Death, Hospitalization)
  Sender: FDA-Public Use
  Company Number: RS-ROCHE-558778

PATIENT
  Age: 70 Year
  Sex: Male

DRUGS (3)
  1. XELODA [Suspect]
     Indication: COLORECTAL CANCER
     Dosage: 4+4 TABLET.
     Route: 048
     Dates: start: 20080211, end: 20080221
  2. XELODA [Suspect]
     Dosage: 4+4 TABLET.
     Route: 048
     Dates: start: 20080226
  3. ELOXATIN [Suspect]
     Indication: COLORECTAL CANCER
     Route: 042
     Dates: start: 20080211, end: 20080221

REACTIONS (5)
  - DEATH [None]
  - DIARRHOEA [None]
  - FEBRILE NEUTROPENIA [None]
  - LEUKOPENIA [None]
  - THROMBOCYTOPENIA [None]
